FAERS Safety Report 21612500 (Version 1)
Quarter: 2022Q4

REPORT INFORMATION
  Report Type: Spontaneous
  Country: FR (occurrence: FR)
  Receive Date: 20221118
  Receipt Date: 20221118
  Transmission Date: 20230113
  Serious: Yes (Hospitalization)
  Sender: FDA-Public Use
  Company Number: None

PATIENT
  Age: 35 Year
  Sex: Male
  Weight: 75 kg

DRUGS (2)
  1. MIRTAZAPINE [Suspect]
     Active Substance: MIRTAZAPINE
     Indication: Childhood psychosis
     Dosage: 30 MILLIGRAM DAILY; 2 TABS OF 15 MG AT BEDTIME, DURATION : 80 DAYS
     Route: 065
     Dates: start: 20220311, end: 20220530
  2. ZUCLOPENTHIXOL [Suspect]
     Active Substance: ZUCLOPENTHIXOL
     Indication: Childhood psychosis
     Dosage: 50 MILLIGRAM DAILY; 25 MG MORNING AND EVENING, , DURATION : 83 DAYS
     Route: 065
     Dates: start: 20220311, end: 20220602

REACTIONS (1)
  - Priapism [Recovered/Resolved]

NARRATIVE: CASE EVENT DATE: 20220526
